FAERS Safety Report 19419885 (Version 4)
Quarter: 2022Q1

REPORT INFORMATION
  Report Type: Report from Study
  Country: JO (occurrence: None)
  Receive Date: 20210616
  Receipt Date: 20220214
  Transmission Date: 20220423
  Serious: Yes (Other)
  Sender: FDA-Public Use
  Company Number: JO-MERCK HEALTHCARE KGAA-9243551

PATIENT
  Age: 35 Year
  Sex: Female

DRUGS (2)
  1. REBIF [Suspect]
     Active Substance: INTERFERON BETA-1A
     Indication: Multiple sclerosis
     Dosage: PRE-FILLED SYRINGE
     Dates: start: 20170601, end: 20210503
  2. REBIF [Suspect]
     Active Substance: INTERFERON BETA-1A
     Dates: start: 20210627

REACTIONS (2)
  - Abortion spontaneous [Recovered/Resolved]
  - Maternal exposure during pregnancy [Recovered/Resolved]

NARRATIVE: CASE EVENT DATE: 20210101
